FAERS Safety Report 20353711 (Version 1)
Quarter: 2022Q1

REPORT INFORMATION
  Report Type: Spontaneous
  Country: GB (occurrence: GB)
  Receive Date: 20220120
  Receipt Date: 20220120
  Transmission Date: 20220423
  Serious: Yes (Other)
  Sender: FDA-Public Use
  Company Number: GB-ABBVIE-22K-167-4239539-00

PATIENT
  Sex: Male

DRUGS (6)
  1. VALPROATE SODIUM [Suspect]
     Active Substance: VALPROATE SODIUM
     Indication: Schizophrenia
     Dosage: ONCE EVERY MORNING
     Route: 065
  2. VALPROATE SODIUM [Suspect]
     Active Substance: VALPROATE SODIUM
     Dosage: ONCE EVERY NIGHT
     Route: 065
  3. OLANZAPINE [Suspect]
     Active Substance: OLANZAPINE
     Indication: Schizophrenia
     Dosage: HS (20 MG EVERY NIGHT)
     Route: 065
  4. CLONAZEPAM [Suspect]
     Active Substance: CLONAZEPAM
     Indication: Schizophrenia
     Dosage: HS (EVERY NIGHT)
     Route: 065
  5. CODEINE [Suspect]
     Active Substance: CODEINE
     Indication: Schizophrenia
     Dosage: PRN
     Route: 065
  6. FLUPENTIXOL [Suspect]
     Active Substance: FLUPENTIXOL
     Indication: Schizophrenia
     Route: 065

REACTIONS (1)
  - Neutropenia [Recovered/Resolved]

NARRATIVE: CASE EVENT DATE: 20180809
